FAERS Safety Report 6724050-5 (Version None)
Quarter: 2010Q2

REPORT INFORMATION
  Report Type: 
  Country: None (occurrence: None)
  Receive Date: 20100513
  Receipt Date: 20100506
  Transmission Date: 20101027
  Serious: Yes (Other)
  Sender: FDA-Public Use
  Company Number: B0650639A

PATIENT
  Sex: Female
  Weight: 48.3 kg

DRUGS (3)
  1. TYKERB [Suspect]
     Indication: DRUG USE FOR UNKNOWN INDICATION
     Dosage: 1250MG PER DAY
     Route: 048
     Dates: start: 20100413, end: 20100422
  2. CAPECITABINE [Concomitant]
     Indication: DRUG USE FOR UNKNOWN INDICATION
     Dosage: 2800MG PER DAY
     Route: 048
     Dates: start: 20100413, end: 20100422
  3. CIPROFLOXACIN HCL [Concomitant]
     Dosage: 1000MG PER DAY
     Dates: start: 20100410, end: 20100419

REACTIONS (2)
  - NAIL DISORDER [None]
  - THROMBOCYTOPENIA [None]
